FAERS Safety Report 5826321-3 (Version None)
Quarter: 2008Q3

REPORT INFORMATION
  Report Type: 
  Country: None (occurrence: None)
  Receive Date: 20080729
  Receipt Date: 20080718
  Transmission Date: 20090109
  Serious: Yes (Other)
  Sender: FDA-Public Use
  Company Number: GB-PFIZER INC-2008059196

PATIENT
  Sex: Female

DRUGS (2)
  1. CYTOTEC [Suspect]
     Route: 067
  2. CYTOTEC [Suspect]
     Route: 048

REACTIONS (1)
  - OFF LABEL USE [None]
